FAERS Safety Report 5495788-5 (Version None)
Quarter: 2007Q4

REPORT INFORMATION
  Report Type: 
  Country: None (occurrence: None)
  Receive Date: 20071025
  Receipt Date: 20061121
  Transmission Date: 20080405
  Serious: No
  Sender: FDA-Public Use
  Company Number: A0624430A

PATIENT
  Age: 74 Year
  Sex: Female

DRUGS (3)
  1. ADVAIR DISKUS 100/50 [Suspect]
     Indication: EMPHYSEMA
     Route: 055
  2. SEREVENT [Suspect]
     Indication: EMPHYSEMA
     Route: 055
  3. SPIRIVA [Concomitant]
     Indication: EMPHYSEMA
     Route: 055

REACTIONS (2)
  - ALOPECIA [None]
  - TOOTH DISCOLOURATION [None]
